FAERS Safety Report 23919528 (Version 1)
Quarter: 2024Q2

REPORT INFORMATION
  Report Type: Spontaneous
  Country: CH (occurrence: CH)
  Receive Date: 20240530
  Receipt Date: 20240530
  Transmission Date: 20240716
  Serious: Yes (Hospitalization)
  Sender: FDA-Public Use
  Company Number: None

PATIENT
  Age: 80 Year
  Sex: Male

DRUGS (8)
  1. ATENOLOL [Suspect]
     Active Substance: ATENOLOL
     Indication: Product used for unknown indication
     Dosage: ATENOLOL MEPHA
     Route: 048
     Dates: end: 20240410
  2. Co irbesartan [Concomitant]
     Indication: Product used for unknown indication
     Dosage: HYDROCHLOROTHIAZIDE: 12.5MG; IRBESARTAN: 300MG.
     Route: 048
  3. LERCANIDIPIN MEPHA LACTAB [Concomitant]
     Indication: Product used for unknown indication
     Dosage: LERCANIDIPINE HYDROCHLORIDE: 20MG
     Route: 048
  4. XARELTO [Concomitant]
     Active Substance: RIVAROXABAN
     Indication: Product used for unknown indication
     Dosage: RIVAROXABAN: 20MG
     Route: 048
  5. BROMAZEPAM [Concomitant]
     Active Substance: BROMAZEPAM
     Indication: Product used for unknown indication
     Dosage: BROMAZEPAM: 3MG
     Route: 048
  6. ATORVASTATIN CALCIUM [Concomitant]
     Active Substance: ATORVASTATIN CALCIUM
     Indication: Product used for unknown indication
     Dosage: ATORVASTATIN CALCIUM: 40MG
     Route: 048
  7. PANTOZOL [Concomitant]
     Active Substance: PANTOPRAZOLE SODIUM
     Indication: Product used for unknown indication
     Dosage: PANTOPRAZOLE SODIUM SESQUIHYDRATE): 40MG.
     Route: 048
  8. RANEXA [Concomitant]
     Active Substance: RANOLAZINE
     Indication: Product used for unknown indication
     Dosage: RANOLAZINE: 375MG
     Route: 048

REACTIONS (2)
  - Presyncope [Recovered/Resolved]
  - Bradycardia [Recovering/Resolving]

NARRATIVE: CASE EVENT DATE: 20240410
